FAERS Safety Report 7773096-7 (Version None)
Quarter: 2011Q3

REPORT INFORMATION
  Report Type: 
  Country: None (occurrence: None)
  Receive Date: 20110922
  Receipt Date: 20100412
  Transmission Date: 20111222
  Serious: Yes (Other)
  Sender: FDA-Public Use
  Company Number: US-ASTRAZENECA-2009UW15708

PATIENT
  Age: 17672 Day
  Sex: Male

DRUGS (8)
  1. ZYPREXA [Concomitant]
     Dosage: 15 MG
     Dates: start: 20030103
  2. NIFEDIPINE [Concomitant]
     Dosage: 60 MG ER
     Dates: start: 20040209
  3. BENZTROPINE MESYLATE [Concomitant]
     Dosage: 2 MG
     Dates: start: 20030501
  4. SEROQUEL [Suspect]
     Dosage: 100 MG
     Route: 048
     Dates: start: 20040301
  5. HALOPERIDOL [Concomitant]
     Dosage: 10 MG
     Dates: start: 20030501
  6. CELEXA [Concomitant]
     Dosage: 20 MG
     Dates: start: 20040301
  7. ABILIFY [Concomitant]
     Dosage: 15 MG
     Dates: start: 20040301
  8. RISPERDAL [Concomitant]
     Dosage: 3 MG
     Dates: start: 20030103

REACTIONS (3)
  - DIABETIC KETOACIDOSIS [None]
  - DIABETIC COMA [None]
  - DIABETES MELLITUS [None]
